FAERS Safety Report 10714835 (Version 1)
Quarter: 2015Q1

REPORT INFORMATION
  Report Type: Spontaneous
  Country: FR (occurrence: FR)
  Receive Date: 20150115
  Receipt Date: 20150115
  Transmission Date: 20150721
  Serious: Yes (Death, Hospitalization)
  Sender: FDA-Public Use
  Company Number: FR-009507513-1501FRA002211

PATIENT
  Age: 80 Year
  Sex: Male

DRUGS (10)
  1. EZETROL [Suspect]
     Active Substance: EZETIMIBE
     Dosage: 10 MG, QD
     Route: 048
     Dates: start: 201411
  2. LASILIX [Suspect]
     Active Substance: FUROSEMIDE
     Dosage: 375 MG, QD
     Route: 048
     Dates: start: 201411
  3. STILNOX [Concomitant]
     Active Substance: ZOLPIDEM TARTRATE
  4. NOVO-NORM [Suspect]
     Active Substance: REPAGLINIDE
     Dosage: 0.5 MG, TID
     Route: 048
     Dates: start: 201411
  5. EFFERALGAN [Concomitant]
     Active Substance: ACETAMINOPHEN
     Dosage: UNK
  6. PREVISCAN [Concomitant]
     Active Substance: FLUINDIONE
  7. NEUROTIN (ACETYLCARNITINE HYDROCHLORIDE) [Suspect]
     Active Substance: ACETYLCARNITINE HYDROCHLORIDE
     Dosage: 000 MG, QD
     Route: 048
     Dates: start: 201411
  8. KARDEGIC [Concomitant]
     Active Substance: ASPIRIN LYSINE
  9. FOSRENOL [Concomitant]
     Active Substance: LANTHANUM CARBONATE
  10. EUTHYRAL [Concomitant]
     Active Substance: LEVOTHYROXINE SODIUM\LIOTHYRONINE SODIUM

REACTIONS (1)
  - Pancreatitis [Fatal]

NARRATIVE: CASE EVENT DATE: 20141110
